FAERS Safety Report 6438120-2 (Version None)
Quarter: 2009Q4

REPORT INFORMATION
  Report Type: 
  Country: None (occurrence: None)
  Receive Date: 20091112
  Receipt Date: 20091105
  Transmission Date: 20100525
  Serious: Yes (Hospitalization)
  Sender: FDA-Public Use
  Company Number: FR-TEVA-214469ISR

PATIENT
  Sex: Male

DRUGS (6)
  1. IRINOTECAN HCL [Suspect]
     Indication: COLORECTAL CANCER METASTATIC
     Route: 042
     Dates: start: 20080724, end: 20080724
  2. FLUOROURACIL [Suspect]
     Indication: COLORECTAL CANCER METASTATIC
     Route: 042
     Dates: start: 20080724, end: 20080726
  3. FOLINIC ACID [Suspect]
  4. BEVACIZUMAB [Suspect]
     Indication: COLORECTAL CANCER METASTATIC
     Route: 042
     Dates: start: 20080724, end: 20080724
  5. AMIKACIN [Suspect]
     Indication: PYREXIA
     Route: 042
     Dates: start: 20080809, end: 20080814
  6. PRIMAXIN [Suspect]
     Indication: PYREXIA
     Route: 042
     Dates: start: 20080809, end: 20080820

REACTIONS (1)
  - FISTULA [None]
